FAERS Safety Report 8425525-3 (Version None)
Quarter: 2012Q2

REPORT INFORMATION
  Report Type: 
  Country: None (occurrence: None)
  Receive Date: 20120605
  Receipt Date: 20120605
  Transmission Date: 20120825
  Serious: No
  Sender: FDA-Public Use
  Company Number: None

PATIENT
  Sex: Male
  Weight: 90.0844 kg

DRUGS (2)
  1. PHENERGAN 25MG [Suspect]
     Indication: NAUSEA
     Dosage: 25MG PERIPH IV
     Route: 042
     Dates: start: 20120515
  2. PHENERGAN 25MG [Suspect]
     Indication: ANTIEMETIC SUPPORTIVE CARE
     Dosage: 25MG PERIPH IV
     Route: 042
     Dates: start: 20120515

REACTIONS (2)
  - INFUSION SITE PAIN [None]
  - INFUSION SITE ERYTHEMA [None]
